FAERS Safety Report 4968086-3 (Version None)
Quarter: 2006Q2

REPORT INFORMATION
  Report Type: 
  Country: None (occurrence: None)
  Receive Date: 20060410
  Receipt Date: 20060314
  Transmission Date: 20061013
  Serious: Yes (Other)
  Sender: FDA-Public Use
  Company Number: BR-ROCHE-440311

PATIENT
  Age: 28 Year
  Sex: Male

DRUGS (1)
  1. PANALDINE [Suspect]
     Indication: THROMBOEMBOLIC STROKE
     Dosage: OTHER INDICATION: PROPHYLAXIS MANUFACTURER: SANOFI-SYNTHELABO RECHERCHE
     Route: 048
     Dates: start: 20060218, end: 20060228

REACTIONS (2)
  - PARAESTHESIA [None]
  - URTICARIA [None]
